FAERS Safety Report 5038146-X (Version None)
Quarter: 2006Q2

REPORT INFORMATION
  Report Type: 
  Country: None (occurrence: None)
  Receive Date: 20060622
  Receipt Date: 20060609
  Transmission Date: 20061013
  Serious: Yes (Death, Hospitalization, Other)
  Sender: FDA-Public Use
  Company Number: 2006022299

PATIENT
  Sex: Male

DRUGS (4)
  1. NEURONTIN [Suspect]
     Indication: BACK PAIN
  2. TRAZODONE HCL [Suspect]
     Dosage: 100 MG (1 D)
  3. CHLORADIAZEPOXIDE [Concomitant]
  4. PROZAC [Concomitant]

REACTIONS (13)
  - ALCOHOL POISONING [None]
  - ALCOHOLIC LIVER DISEASE [None]
  - ANXIETY [None]
  - COMPLETED SUICIDE [None]
  - DELIRIUM TREMENS [None]
  - DEPRESSION [None]
  - DRUG INEFFECTIVE [None]
  - GUN SHOT WOUND [None]
  - HEPATITIS ALCOHOLIC [None]
  - LACERATION [None]
  - NAUSEA [None]
  - NERVOUS SYSTEM DISORDER [None]
  - VOMITING [None]
